FAERS Safety Report 5206163-2 (Version None)
Quarter: 2006Q4

REPORT INFORMATION
  Report Type: 
  Country: None (occurrence: None)
  Receive Date: 20061026
  Receipt Date: 20060921
  Transmission Date: 20070319
  Serious: No
  Sender: FDA-Public Use
  Company Number: 2006114862

PATIENT

DRUGS (1)
  1. LYRICA [Suspect]

REACTIONS (2)
  - HOT FLUSH [None]
  - TEMPERATURE INTOLERANCE [None]
